FAERS Safety Report 10927196 (Version 1)
Quarter: 2015Q1

REPORT INFORMATION
  Report Type: Spontaneous
  Country: BR (occurrence: BR)
  Receive Date: 20150318
  Receipt Date: 20150318
  Transmission Date: 20150721
  Serious: No
  Sender: FDA-Public Use
  Company Number: BR-LUNDBECK-DKLU1109608

PATIENT
  Age: 25 Year
  Sex: Male

DRUGS (3)
  1. FLUOXETINE [Concomitant]
     Active Substance: FLUOXETINE\FLUOXETINE HYDROCHLORIDE
     Indication: PRODUCT USED FOR UNKNOWN INDICATION
  2. URBANIL [Suspect]
     Active Substance: CLOBAZAM
     Route: 048
     Dates: start: 201502
  3. URBANIL [Suspect]
     Active Substance: CLOBAZAM
     Indication: PANIC ATTACK
     Route: 048

REACTIONS (4)
  - Swelling face [Not Recovered/Not Resolved]
  - Malaise [Not Recovered/Not Resolved]
  - Sluggishness [Not Recovered/Not Resolved]
  - Decreased appetite [Not Recovered/Not Resolved]

NARRATIVE: CASE EVENT DATE: 201502
